FAERS Safety Report 7065070-3 (Version None)
Quarter: 2010Q4

REPORT INFORMATION
  Report Type: 
  Country: None (occurrence: None)
  Receive Date: 20101027
  Receipt Date: 20101020
  Transmission Date: 20110411
  Serious: No
  Sender: FDA-Public Use
  Company Number: US-B.I. PHARMACEUTICALS,INC./RIDGEFIELD-2010-BP-11346BP

PATIENT
  Sex: Male

DRUGS (8)
  1. SPIRIVA [Suspect]
     Indication: CHRONIC OBSTRUCTIVE PULMONARY DISEASE
     Dosage: 18 MCG
     Route: 055
     Dates: start: 20040101
  2. SPIRIVA [Suspect]
     Indication: BRONCHITIS CHRONIC
  3. ADVAIR DISKUS 100/50 [Suspect]
     Indication: CHRONIC OBSTRUCTIVE PULMONARY DISEASE
     Route: 055
  4. ASPIRIN [Concomitant]
     Indication: PROPHYLAXIS
     Dosage: 325 MG
     Route: 048
  5. RANITIDINE [Concomitant]
     Indication: PROPHYLAXIS
     Dosage: 150-300MG
     Route: 048
  6. MECLIZINE [Concomitant]
     Indication: DIZZINESS
     Dosage: 12.5-25MG PRN
     Route: 048
  7. XOPENEX [Concomitant]
     Indication: CHRONIC OBSTRUCTIVE PULMONARY DISEASE
     Route: 055
  8. ALBUTEROL [Concomitant]
     Indication: CHRONIC OBSTRUCTIVE PULMONARY DISEASE
     Dosage: NEBS
     Route: 055

REACTIONS (14)
  - BLOOD CHOLESTEROL INCREASED [None]
  - CONSTIPATION [None]
  - DECREASED APPETITE [None]
  - DRY MOUTH [None]
  - DYSPHAGIA [None]
  - DYSPHONIA [None]
  - DYSURIA [None]
  - ENAMEL ANOMALY [None]
  - GINGIVAL DISORDER [None]
  - TEETH BRITTLE [None]
  - TOOTH EROSION [None]
  - TOOTH LOSS [None]
  - TOOTH MALFORMATION [None]
  - VISION BLURRED [None]
